FAERS Safety Report 23866874 (Version 2)
Quarter: 2025Q2

REPORT INFORMATION
  Report Type: Spontaneous
  Country: US (occurrence: US)
  Receive Date: 20240517
  Receipt Date: 20250410
  Transmission Date: 20250716
  Serious: No
  Sender: KINIKSA PHARMACEUTICALS
  Company Number: US-Kiniksa Pharmaceuticals Ltd.-2024KPU000118

PATIENT
  Age: 77 Year
  Sex: Female

DRUGS (5)
  1. ARCALYST [Suspect]
     Active Substance: RILONACEPT
     Indication: Pericarditis
     Route: 058
     Dates: start: 20231116
  2. ARCALYST [Suspect]
     Active Substance: RILONACEPT
     Route: 058
     Dates: start: 20231123
  3. PREDNISONE [Concomitant]
     Active Substance: PREDNISONE
     Indication: Pericarditis
  4. LASIX [Concomitant]
     Active Substance: FUROSEMIDE
     Indication: Peripheral swelling
  5. LASIX [Concomitant]
     Active Substance: FUROSEMIDE
     Indication: Joint swelling

REACTIONS (7)
  - Sciatica [Not Recovered/Not Resolved]
  - Pruritus [Unknown]
  - Hypersensitivity [Unknown]
  - Injection site rash [Recovering/Resolving]
  - Injection site erythema [Unknown]
  - Peripheral swelling [Not Recovered/Not Resolved]
  - Joint swelling [Not Recovered/Not Resolved]

NARRATIVE: CASE EVENT DATE: 20240129
